FAERS Safety Report 24642431 (Version 1)
Quarter: 2024Q4

REPORT INFORMATION
  Report Type: Spontaneous
  Country: CN (occurrence: CN)
  Receive Date: 20241120
  Receipt Date: 20241120
  Transmission Date: 20250115
  Serious: Yes (Hospitalization)
  Sender: MYLAN
  Company Number: CN-MYLANLABS-2024M1103140

PATIENT
  Age: 16 Year
  Sex: Female
  Weight: 50 kg

DRUGS (2)
  1. ZOLOFT [Interacting]
     Active Substance: SERTRALINE HYDROCHLORIDE
     Indication: Insomnia
     Dosage: 4 DOSAGE FORM, QD
     Route: 048
     Dates: start: 20241110, end: 20241110
  2. ALCOHOL [Interacting]
     Active Substance: ALCOHOL
     Indication: Insomnia
     Dosage: (ALCOHOL WAS BEER, SPECIFIC DOSE  UNKNOWN
     Route: 065
     Dates: start: 20241110

REACTIONS (8)
  - Amnesia [Recovering/Resolving]
  - Mydriasis [Recovering/Resolving]
  - Tremor [Recovering/Resolving]
  - Nausea [Recovering/Resolving]
  - Vomiting [Recovering/Resolving]
  - Hallucination [Recovering/Resolving]
  - Alcohol interaction [Unknown]
  - Prescription drug used without a prescription [Unknown]

NARRATIVE: CASE EVENT DATE: 20241110
